FAERS Safety Report 17984553 (Version 6)
Quarter: 2021Q2

REPORT INFORMATION
  Report Type: Spontaneous
  Country: US (occurrence: US)
  Receive Date: 20200706
  Receipt Date: 20210609
  Transmission Date: 20210717
  Serious: Yes (Other)
  Sender: FDA-Public Use
  Company Number: US-SA-2020SA170067

PATIENT
  Age: 19 Year
  Sex: Female

DRUGS (4)
  1. ZOFRAN [Concomitant]
     Active Substance: ONDANSETRON HYDROCHLORIDE
     Indication: PREMEDICATION
  2. IBUPROFEN. [Concomitant]
     Active Substance: IBUPROFEN
     Indication: PREMEDICATION
  3. LUMIZYME [Suspect]
     Active Substance: ALGLUCOSIDASE ALFA
     Indication: GLYCOGEN STORAGE DISEASE TYPE II
     Dosage: 1650 MG, QOW
     Route: 041
  4. LUMIZYME [Suspect]
     Active Substance: ALGLUCOSIDASE ALFA
     Dosage: 1650 MG, QOW
     Route: 041
     Dates: start: 20200708

REACTIONS (5)
  - Loss of consciousness [Recovered/Resolved]
  - Seizure like phenomena [Recovered/Resolved]
  - Infusion site pain [Unknown]
  - Poor venous access [Unknown]
  - Nausea [Unknown]

NARRATIVE: CASE EVENT DATE: 20200708
